FAERS Safety Report 4982194-2 (Version None)
Quarter: 2006Q2

REPORT INFORMATION
  Report Type: 
  Country: None (occurrence: None)
  Receive Date: 20060425
  Receipt Date: 20060302
  Transmission Date: 20061013
  Serious: Yes (Hospitalization)
  Sender: FDA-Public Use
  Company Number: US-MERCK-0603USA00625

PATIENT
  Age: 46 Year
  Sex: Male
  Weight: 105 kg

DRUGS (2)
  1. VIOXX [Suspect]
     Indication: SHOULDER PAIN
     Route: 048
     Dates: start: 19991228, end: 20010312
  2. VIOXX [Suspect]
     Indication: ARTHRALGIA
     Route: 048
     Dates: start: 19991228, end: 20010312

REACTIONS (34)
  - ANXIETY [None]
  - ANXIETY DISORDER [None]
  - ARTHROPATHY [None]
  - BACK INJURY [None]
  - BONE PAIN [None]
  - BURNING SENSATION [None]
  - CERVICOBRACHIAL SYNDROME [None]
  - CHEST PAIN [None]
  - CONTUSION [None]
  - CORONARY ARTERY RESTENOSIS [None]
  - CORONARY ARTERY STENOSIS [None]
  - DEPRESSION [None]
  - DYSPNOEA [None]
  - GROIN PAIN [None]
  - HAEMATOCHEZIA [None]
  - HYPOAESTHESIA [None]
  - HYPOTENSION [None]
  - LUMBAR RADICULOPATHY [None]
  - LUNG NEOPLASM [None]
  - MERALGIA PARAESTHETICA [None]
  - MUSCLE SPASMS [None]
  - MUSCULOSKELETAL CHEST PAIN [None]
  - MYOCARDIAL INFARCTION [None]
  - NAUSEA [None]
  - NEUROPATHY [None]
  - OSTEOARTHRITIS [None]
  - PAIN IN EXTREMITY [None]
  - POSTNASAL DRIP [None]
  - PRODUCTIVE COUGH [None]
  - RETCHING [None]
  - ROAD TRAFFIC ACCIDENT [None]
  - SHOULDER PAIN [None]
  - VENTRICULAR DYSFUNCTION [None]
  - VOMITING [None]
